FAERS Safety Report 18133861 (Version 1)
Quarter: 2020Q3

REPORT INFORMATION
  Report Type: Spontaneous
  Country: CA (occurrence: CA)
  Receive Date: 20200811
  Receipt Date: 20200811
  Transmission Date: 20201103
  Serious: Yes (Other)
  Sender: FDA-Public Use
  Company Number: CA-TEVA-2020-CA-1812931

PATIENT
  Age: 50 Year
  Sex: Female

DRUGS (4)
  1. OXYCODONE IR [Concomitant]
     Active Substance: OXYCODONE
     Dosage: 5 MG, AS NEEDED
  2. BUDESONIDE. [Concomitant]
     Active Substance: BUDESONIDE
     Dosage: 12 MILLIGRAM DAILY;
     Route: 048
  3. PREDNISONE. [Suspect]
     Active Substance: PREDNISONE
     Dosage: 2.5 MILLIGRAM DAILY;
     Route: 048
  4. OXYCODONE SR [Concomitant]
     Active Substance: OXYCODONE
     Dosage: 40 MILLIGRAM DAILY;

REACTIONS (5)
  - Rectal haemorrhage [Not Recovered/Not Resolved]
  - Abdominal pain [Unknown]
  - Drug resistance [Unknown]
  - Therapy non-responder [Unknown]
  - Diarrhoea [Unknown]
